FAERS Safety Report 17371674 (Version 2)
Quarter: 2020Q3

REPORT INFORMATION
  Report Type: Spontaneous
  Country: GB (occurrence: GB)
  Receive Date: 20200205
  Receipt Date: 20200811
  Transmission Date: 20201102
  Serious: Yes (Other)
  Sender: FDA-Public Use
  Company Number: GB-ALKEM LABORATORIES LIMITED-GB-ALKEM-2020-00179

PATIENT
  Age: 67 Year
  Sex: Female

DRUGS (20)
  1. PREGABALIN. [Suspect]
     Active Substance: PREGABALIN
     Indication: PRODUCT USED FOR UNKNOWN INDICATION
     Dosage: 75 MILLIGRAM, BID (EVERY 12 HOUR)
     Route: 048
  2. ASPIRIN. [Suspect]
     Active Substance: ASPIRIN
     Indication: PRODUCT USED FOR UNKNOWN INDICATION
     Dosage: 75 MILLIGRAM, EVERY 1 DAY
     Route: 065
  3. NEBIVOLOL. [Suspect]
     Active Substance: NEBIVOLOL
     Indication: BLOOD PRESSURE MEASUREMENT
     Dosage: 2.5 MILLIGRAM, OD (EVERY 1 DAY)
     Route: 048
  4. FABRAZYME [Suspect]
     Active Substance: AGALSIDASE BETA
     Dosage: UNK, EVERY
     Route: 041
     Dates: start: 20170320
  5. FABRAZYME [Suspect]
     Active Substance: AGALSIDASE BETA
     Dosage: UNK, EVERY
     Route: 041
     Dates: start: 20170404
  6. FABRAZYME [Suspect]
     Active Substance: AGALSIDASE BETA
     Indication: PRODUCT USED FOR UNKNOWN INDICATION
     Dosage: 50 MILLIGRAM, EVERY 2 WEEK
     Route: 041
     Dates: start: 20170206
  7. FABRAZYME [Suspect]
     Active Substance: AGALSIDASE BETA
     Dosage: UNK, EVERY 2 WEEK
     Route: 041
  8. CITALOPRAM [Suspect]
     Active Substance: CITALOPRAM HYDROBROMIDE
     Indication: PRODUCT USED FOR UNKNOWN INDICATION
     Dosage: 10 MILLIGRAM, OD (EVERY 1 DAY)
     Route: 048
  9. AMIODARONE HYDROCHLORIDE. [Suspect]
     Active Substance: AMIODARONE HYDROCHLORIDE
     Indication: PRODUCT USED FOR UNKNOWN INDICATION
     Dosage: 200 MILLIGRAM, OD (EVERY 1 DAY)
     Route: 065
  10. CODEINE [Suspect]
     Active Substance: CODEINE
     Indication: PRODUCT USED FOR UNKNOWN INDICATION
     Dosage: 4 DOSAGE FORM, OD (EVERY 1 DAY)
     Route: 048
  11. CHOLECALCIFEROL [Suspect]
     Active Substance: CHOLECALCIFEROL
     Indication: PRODUCT USED FOR UNKNOWN INDICATION
     Dosage: 800 INTERNATIONAL UNIT, OD (EVERY 1 DAY)
     Route: 048
  12. CLOPIDOGREL ZENTIVA [Suspect]
     Active Substance: CLOPIDOGREL BISULFATE
     Indication: PRODUCT USED FOR UNKNOWN INDICATION
     Dosage: 75 MILLIGRAM, OD (EVERY 1 DAY)
     Route: 048
  13. PERINDOPRIL [Suspect]
     Active Substance: PERINDOPRIL
     Indication: PRODUCT USED FOR UNKNOWN INDICATION
     Dosage: 4 MILLIGRAM, OD (EVERY 1 DAY)
     Route: 048
  14. FABRAZYME [Suspect]
     Active Substance: AGALSIDASE BETA
     Dosage: UNK, EVERY
     Route: 041
     Dates: start: 20170220
  15. FABRAZYME [Suspect]
     Active Substance: AGALSIDASE BETA
     Dosage: UNK, EVERY
     Route: 041
     Dates: start: 20170420
  16. FABRAZYME [Suspect]
     Active Substance: AGALSIDASE BETA
     Dosage: UNK, EVERY
     Route: 041
     Dates: start: 20171129
  17. LANSOPRAZOLE. [Suspect]
     Active Substance: LANSOPRAZOLE
     Indication: PRODUCT USED FOR UNKNOWN INDICATION
     Dosage: 30 MILLIGRAM, OD, EVERY 1 DAY
     Route: 048
  18. FABRAZYME [Suspect]
     Active Substance: AGALSIDASE BETA
     Dosage: UNK, EVERY
     Route: 041
     Dates: start: 20171213
  19. PARACETAMOL, CODEINE [Suspect]
     Active Substance: ACETAMINOPHEN\CODEINE PHOSPHATE
     Indication: PRODUCT USED FOR UNKNOWN INDICATION
     Dosage: 4 DOSAGE FORM, OD (EVERY 1 DAY)
     Route: 048
  20. SALBUTAMOL SULFATE [Suspect]
     Active Substance: ALBUTEROL SULFATE
     Indication: COUGH
     Dosage: 2 DOSAGE FORM, OD (EVERY 1 DAY)
     Route: 055

REACTIONS (3)
  - Cough [Recovered/Resolved]
  - Lower respiratory tract infection [Unknown]
  - Wheezing [Unknown]
